FAERS Safety Report 5822606-5 (Version None)
Quarter: 2008Q3

REPORT INFORMATION
  Report Type: 
  Country: None (occurrence: None)
  Receive Date: 20080723
  Receipt Date: 20080723
  Transmission Date: 20090109
  Serious: Yes (Hospitalization)
  Sender: FDA-Public Use
  Company Number: None

PATIENT
  Sex: Female
  Weight: 71.2147 kg

DRUGS (2)
  1. VINORELBINE [Suspect]
     Indication: RECTAL CANCER
     Dosage: 25 MG/M2 D 1,8,15 Q 28 D IV
     Route: 042
     Dates: start: 20080625, end: 20080702
  2. LAPATINIB 1500MG [Suspect]
     Indication: RECTAL CANCER
     Dosage: 1500MG DAILY P.O.
     Route: 048
     Dates: start: 20080625, end: 20080704

REACTIONS (5)
  - BLOOD CREATININE INCREASED [None]
  - FEBRILE NEUTROPENIA [None]
  - INTESTINAL OBSTRUCTION [None]
  - NAUSEA [None]
  - VOMITING [None]
